FAERS Safety Report 21823909 (Version 2)
Quarter: 2023Q1

REPORT INFORMATION
  Report Type: Spontaneous
  Country: ES (occurrence: ES)
  Receive Date: 20230105
  Receipt Date: 20230120
  Transmission Date: 20230417
  Serious: Yes (Hospitalization, Other)
  Sender: FDA-Public Use
  Company Number: ES-ALNYLAM PHARMACEUTICALS, INC.-ALN-2022-004754

PATIENT

DRUGS (1)
  1. GIVLAARI [Suspect]
     Active Substance: GIVOSIRAN SODIUM
     Indication: Porphyria acute
     Dosage: UNK, MONTHLY
     Route: 065

REACTIONS (12)
  - Porphyria acute [Unknown]
  - Drug-induced liver injury [Unknown]
  - Thrombophlebitis [Unknown]
  - Alanine aminotransferase increased [Unknown]
  - Blood homocysteine increased [Unknown]
  - Fatigue [Unknown]
  - Back pain [Unknown]
  - Vomiting [Not Recovered/Not Resolved]
  - Therapeutic product ineffective [Unknown]
  - Abdominal pain upper [Not Recovered/Not Resolved]
  - Ultrasound liver abnormal [Unknown]
  - Aspartate aminotransferase increased [Unknown]

NARRATIVE: CASE EVENT DATE: 20210401
